FAERS Safety Report 23615044 (Version 1)
Quarter: 2024Q1

REPORT INFORMATION
  Report Type: Spontaneous
  Country: US (occurrence: US)
  Receive Date: 20240311
  Receipt Date: 20240311
  Transmission Date: 20240410
  Serious: Yes (Death, Hospitalization, Other)
  Sender: FDA-Public Use
  Company Number: US-AUROBINDO-AUR-APL-2012-01468

PATIENT
  Age: 27 Year
  Sex: Female

DRUGS (8)
  1. LORAZEPAM [Suspect]
     Active Substance: LORAZEPAM
     Indication: Catatonia
     Dosage: 2 MILLIGRAM
     Route: 042
  2. LORAZEPAM [Suspect]
     Active Substance: LORAZEPAM
     Indication: Agitation
     Dosage: 2 MILLIGRAM
     Route: 030
  3. LORAZEPAM [Suspect]
     Active Substance: LORAZEPAM
     Dosage: 1 MILLIGRAM
     Route: 065
  4. QUETIAPINE [Suspect]
     Active Substance: QUETIAPINE
     Indication: Depression
     Dosage: 25 MILLIGRAM
     Route: 065
  5. RISPERIDONE [Suspect]
     Active Substance: RISPERIDONE
     Indication: Depression
     Dosage: 0.5 MILLIGRAM, ONCE A DAY
     Route: 065
  6. RISPERIDONE [Suspect]
     Active Substance: RISPERIDONE
     Indication: Hallucination, auditory
  7. SERTRALINE [Suspect]
     Active Substance: SERTRALINE HYDROCHLORIDE
     Indication: Depression
     Dosage: 50 MILLIGRAM, DAILY
     Route: 065
  8. HALOPERIDOL [Suspect]
     Active Substance: HALOPERIDOL
     Indication: Agitation
     Dosage: 5 MILLIGRAM
     Route: 030

REACTIONS (18)
  - Pulmonary embolism [Fatal]
  - Cardio-respiratory arrest [Fatal]
  - Unresponsive to stimuli [Unknown]
  - Depression [Unknown]
  - Blood fibrinogen increased [Unknown]
  - Ketonuria [Unknown]
  - White blood cell count increased [Unknown]
  - Hypokalaemia [Unknown]
  - Catatonia [Recovering/Resolving]
  - Chest pain [Unknown]
  - Paranoia [Unknown]
  - Agitation [Unknown]
  - Dyspnoea [Unknown]
  - Hallucination, auditory [Unknown]
  - Heart rate increased [Unknown]
  - Feeling of despair [Unknown]
  - Self esteem decreased [Unknown]
  - Fall [Unknown]
